FAERS Safety Report 14730052 (Version 3)
Quarter: 2018Q3

REPORT INFORMATION
  Report Type: Spontaneous
  Country: PT (occurrence: PT)
  Receive Date: 20180406
  Receipt Date: 20180705
  Transmission Date: 20181010
  Serious: Yes (Other)
  Sender: FDA-Public Use
  Company Number: PT-CELLTRION INC.-2018PT018971

PATIENT

DRUGS (10)
  1. CIPROFLOXACIN. [Suspect]
     Active Substance: CIPROFLOXACIN
     Indication: AUTOIMMUNE HAEMOLYTIC ANAEMIA
  2. INFLIXIMAB (UNKNOWN) [Suspect]
     Active Substance: INFLIXIMAB
     Indication: AUTOIMMUNE HAEMOLYTIC ANAEMIA
  3. INFLIXIMAB (UNKNOWN) [Suspect]
     Active Substance: INFLIXIMAB
     Indication: POUCHITIS
  4. METRONIDAZOLE. [Suspect]
     Active Substance: METRONIDAZOLE
     Indication: POUCHITIS
     Route: 065
  5. BUDESONIDE. [Suspect]
     Active Substance: BUDESONIDE
     Indication: POUCHITIS
     Dosage: DOSAGE FORM: UNSPECIFIED
     Route: 048
  6. INFLIXIMAB (UNKNOWN) [Suspect]
     Active Substance: INFLIXIMAB
     Indication: COLITIS ULCERATIVE
     Dosage: UNK
     Route: 042
  7. BUDESONIDE. [Suspect]
     Active Substance: BUDESONIDE
     Indication: AUTOIMMUNE HAEMOLYTIC ANAEMIA
  8. CIPROFLOXACIN. [Suspect]
     Active Substance: CIPROFLOXACIN
     Indication: POUCHITIS
     Dosage: DOSAGE FORM: UNSPECIFIED
     Route: 065
  9. ADALIMUMAB [Suspect]
     Active Substance: ADALIMUMAB
     Indication: POUCHITIS
     Dosage: DOSAGE FORM: UNSPECIFIED
     Route: 065
  10. ADALIMUMAB [Suspect]
     Active Substance: ADALIMUMAB
     Indication: AUTOIMMUNE HAEMOLYTIC ANAEMIA

REACTIONS (5)
  - Pouchitis [Recovering/Resolving]
  - Drug ineffective [Unknown]
  - Autoimmune haemolytic anaemia [Recovering/Resolving]
  - Therapeutic response decreased [Unknown]
  - Off label use [Unknown]
